FAERS Safety Report 10691213 (Version 1)
Quarter: 2014Q4

REPORT INFORMATION
  Report Type: Spontaneous
  Country: US (occurrence: None)
  Receive Date: 20141126
  Receipt Date: 20141126
  Transmission Date: 20150529
  Serious: Yes (Other)
  Sender: FDA-Public Use
  Company Number: CP-KP-US-2014-024

PATIENT
  Age: 11 Year
  Sex: Male

DRUGS (2)
  1. CLONIDINE 0.2 MILLIGRAM (CLONIDINE) [Suspect]
     Active Substance: CLONIDINE
     Indication: CONDUCT DISORDER
  2. RISPERIDONE. [Concomitant]
     Active Substance: RISPERIDONE

REACTIONS (1)
  - Sedation [None]
